FAERS Safety Report 6035513-2 (Version None)
Quarter: 2009Q1

REPORT INFORMATION
  Report Type: 
  Country: None (occurrence: None)
  Receive Date: 20090112
  Receipt Date: 20090112
  Transmission Date: 20090719
  Serious: Yes (Hospitalization)
  Sender: FDA-Public Use
  Company Number: None

PATIENT
  Sex: Female
  Weight: 65 kg

DRUGS (2)
  1. TAXOL [Suspect]
     Dosage: 270 MG
     Dates: end: 20081231
  2. HERCEPTIN [Suspect]
     Dosage: 388 MG
     Dates: end: 20081231

REACTIONS (9)
  - ADRENAL DISORDER [None]
  - COLITIS [None]
  - ELECTROCARDIOGRAM ABNORMAL [None]
  - FOLLICULITIS [None]
  - GASTROENTERITIS [None]
  - PNEUMONIA [None]
  - PYREXIA [None]
  - SUTURE INSERTION [None]
  - SYNCOPE [None]
